FAERS Safety Report 5444697-6 (Version None)
Quarter: 2007Q3

REPORT INFORMATION
  Report Type: 
  Country: None (occurrence: None)
  Receive Date: 20070906
  Receipt Date: 20070202
  Transmission Date: 20080115
  Serious: No
  Sender: FDA-Public Use
  Company Number: A0638147A

PATIENT
  Sex: Female

DRUGS (3)
  1. REQUIP [Suspect]
     Indication: RESTLESS LEGS SYNDROME
     Dosage: .5MG PER DAY
     Route: 048
     Dates: start: 20070115, end: 20070117
  2. ANTI-HYPERTENSIVE [Concomitant]
  3. BLOOD THINNER [Concomitant]

REACTIONS (1)
  - DRUG INEFFECTIVE [None]
